FAERS Safety Report 17443474 (Version 1)
Quarter: 2020Q1

REPORT INFORMATION
  Report Type: Spontaneous
  Country: US (occurrence: US)
  Receive Date: 20200206
  Receipt Date: 20200206
  Transmission Date: 20200409
  Serious: No
  Sender: FDA-Public Use
  Company Number: None

PATIENT
  Age: 15 Year

DRUGS (1)
  1. ZOMACTON [Suspect]
     Active Substance: SOMATROPIN
     Route: 058
     Dates: start: 2019

REACTIONS (1)
  - Manufacturing product storage issue [None]

NARRATIVE: CASE EVENT DATE: 20200206
